FAERS Safety Report 11129507 (Version 1)
Quarter: 2015Q2

REPORT INFORMATION
  Report Type: Spontaneous
  Country: US (occurrence: US)
  Receive Date: 20150521
  Receipt Date: 20150521
  Transmission Date: 20150821
  Serious: No
  Sender: FDA-Public Use
  Company Number: US-B.I. PHARMACEUTICALS,INC./RIDGEFIELD-2015-BI-25289BP

PATIENT
  Age: 72 Year
  Sex: Female
  Weight: 73 kg

DRUGS (4)
  1. SPIRONOLACTONE HCTZ [Concomitant]
     Indication: HYPERTENSION
  2. PRADAXA [Suspect]
     Active Substance: DABIGATRAN ETEXILATE MESYLATE
     Indication: ATRIAL FIBRILLATION
     Dosage: 300 MG
     Route: 048
     Dates: start: 201112
  3. DILTIAZEM [Concomitant]
     Active Substance: DILTIAZEM
     Indication: ATRIAL FIBRILLATION
     Dosage: 180 MG
     Route: 048
     Dates: start: 2010
  4. SPIRONOLACTONE HCTZ [Concomitant]
     Indication: CARDIAC DISORDER
     Dosage: DOSE PER APPLICATION: 25MG/25MG; DAILY DOSE: 12.5 MG/12.5MG
     Route: 048
     Dates: start: 2013

REACTIONS (1)
  - Atrial fibrillation [Recovered/Resolved]

NARRATIVE: CASE EVENT DATE: 20150510
